FAERS Safety Report 9197821 (Version 1)
Quarter: 2013Q1

REPORT INFORMATION
  Report Type: Spontaneous
  Country: HR (occurrence: HR)
  Receive Date: 20130328
  Receipt Date: 20130328
  Transmission Date: 20140127
  Serious: Yes (Other)
  Sender: FDA-Public Use
  Company Number: HR-PFIZER INC-2013099690

PATIENT
  Age: 31 Year
  Sex: Female

DRUGS (2)
  1. LYRICA [Suspect]
     Indication: NEURALGIA
     Dosage: 75 MG, 1-2 IN THE EVENING
     Dates: start: 20121121
  2. DICLOFENAC [Suspect]
     Dosage: UNK
     Dates: start: 20121114

REACTIONS (4)
  - Hallucination, visual [Unknown]
  - Hallucination, auditory [Unknown]
  - Restlessness [Unknown]
  - Middle insomnia [Unknown]
